FAERS Safety Report 7205785-7 (Version None)
Quarter: 2010Q4

REPORT INFORMATION
  Report Type: 
  Country: None (occurrence: None)
  Receive Date: 20101231
  Receipt Date: 20101220
  Transmission Date: 20110411
  Serious: Yes (Hospitalization, Other)
  Sender: FDA-Public Use
  Company Number: SE-PFIZER INC-2010180887

PATIENT
  Age: 72 Year
  Sex: Female

DRUGS (8)
  1. CORDARONE [Suspect]
     Indication: ATRIAL FIBRILLATION
     Dosage: 200 MG, 1X/DAY
     Route: 049
     Dates: start: 20101102, end: 20101115
  2. METOPROLOL TARTRATE [Suspect]
     Indication: ATRIAL FIBRILLATION
     Dosage: 200 MG, 1X/DAY
     Route: 048
     Dates: start: 20101102, end: 20101115
  3. SIMVASTATIN [Concomitant]
  4. WARAN [Concomitant]
  5. TROMBYL [Concomitant]
  6. METFORMIN [Concomitant]
  7. GLYTRIN [Concomitant]
  8. ZOPICLONE [Concomitant]

REACTIONS (3)
  - ATRIOVENTRICULAR BLOCK [None]
  - CARDIAC ARREST [None]
  - DYSPNOEA [None]
